FAERS Safety Report 5532764-8 (Version None)
Quarter: 2007Q4

REPORT INFORMATION
  Report Type: 
  Country: None (occurrence: None)
  Receive Date: 20071204
  Receipt Date: 20071123
  Transmission Date: 20080405
  Serious: Yes (Hospitalization)
  Sender: FDA-Public Use
  Company Number: PHHO2007GB19486

PATIENT
  Age: 73 Year
  Sex: Female

DRUGS (14)
  1. CYCLOSPORINE [Suspect]
     Indication: RENAL TRANSPLANT
     Dosage: 75MG DAILY
     Route: 048
     Dates: start: 20020128
  2. ALENDRONIC ACID [Concomitant]
  3. METOLAZONE [Concomitant]
  4. ROFECOXIB [Concomitant]
  5. KAPAKE [Concomitant]
  6. AMIODARONE HYDROCHLORIDE [Concomitant]
  7. AMILORIDE HYDROCHLORIDE [Concomitant]
  8. BUMETANIDE [Concomitant]
  9. ASPIRIN [Concomitant]
  10. PREDNISOLONE [Concomitant]
  11. ATORVASTATIN [Concomitant]
  12. RANITIDINE HCL [Concomitant]
  13. ENALAPRIL [Concomitant]
  14. AZATHIOPRINE [Concomitant]

REACTIONS (2)
  - CONDITION AGGRAVATED [None]
  - GOUT [None]
